FAERS Safety Report 24335023 (Version 1)
Quarter: 2024Q3

REPORT INFORMATION
  Report Type: Spontaneous
  Country: JP (occurrence: JP)
  Receive Date: 20240918
  Receipt Date: 20240918
  Transmission Date: 20241016
  Serious: Yes (Death, Other)
  Sender: JAZZ
  Company Number: JP-JAZZ PHARMACEUTICALS-2024-JP-015297

PATIENT
  Age: 2 Month
  Sex: Male

DRUGS (14)
  1. DEFITELIO [Suspect]
     Active Substance: DEFIBROTIDE SODIUM
     Indication: Venoocclusive liver disease
     Route: 042
  2. CYTARABINE [Suspect]
     Active Substance: CYTARABINE
     Indication: B-cell type acute leukaemia
     Dosage: 1 MILLIGRAM/KILOGRAM, QD
     Route: 042
  3. CYTARABINE [Suspect]
     Active Substance: CYTARABINE
     Indication: Acute monocytic leukaemia
     Dosage: 3 MILLIGRAM/KILOGRAM, QD
     Route: 042
  4. CYTARABINE [Suspect]
     Active Substance: CYTARABINE
     Dosage: 4.4 MILLIGRAM/KILOGRAM, QD
     Route: 042
  5. CYTARABINE [Suspect]
     Active Substance: CYTARABINE
     Dosage: INTRAMEDULLAR (BONE MARROW)
  6. DEXAMETHASONE [Concomitant]
     Active Substance: DEXAMETHASONE
     Indication: Cytokine storm
     Dosage: 6 MILLIGRAM/SQ. METER
  7. ETOPOSIDE [Concomitant]
     Active Substance: ETOPOSIDE
     Indication: Product used for unknown indication
     Dosage: 3.3 MILLIGRAM/KILOGRAM
  8. LEVETIRACETAM [Concomitant]
     Active Substance: LEVETIRACETAM
     Indication: Product used for unknown indication
  9. MIDAZOLAM [Concomitant]
     Active Substance: MIDAZOLAM
     Indication: Tremor
  10. PHENOBARBITAL [Concomitant]
     Active Substance: PHENOBARBITAL
     Indication: Product used for unknown indication
  11. DEXTROMETHORPHAN [Concomitant]
     Active Substance: DEXTROMETHORPHAN
     Indication: Product used for unknown indication
  12. ONCOVIN [Concomitant]
     Active Substance: VINCRISTINE SULFATE
  13. ASPARAGINASE [Concomitant]
     Active Substance: ASPARAGINASE
  14. DEXAMETHASONE [Concomitant]
     Active Substance: DEXAMETHASONE
     Indication: Product used for unknown indication
     Dosage: 0.25 MILLIGRAM/KILOGRAM

REACTIONS (11)
  - B-cell type acute leukaemia [Fatal]
  - Acute monocytic leukaemia [Fatal]
  - Venoocclusive liver disease [Recovering/Resolving]
  - Systemic inflammatory response syndrome [Unknown]
  - Disseminated intravascular coagulation in newborn [Unknown]
  - Tumour lysis syndrome [Unknown]
  - Encephalopathy [Unknown]
  - Acute kidney injury [Unknown]
  - Haemophagocytic lymphohistiocytosis [Unknown]
  - Fungal infection [Unknown]
  - Epilepsy [Unknown]
